FAERS Safety Report 23340247 (Version 6)
Quarter: 2024Q1

REPORT INFORMATION
  Report Type: Other
  Country: JP (occurrence: JP)
  Receive Date: 20231227
  Receipt Date: 20240312
  Transmission Date: 20240409
  Serious: Yes (Life-Threatening)
  Sender: FDA-Public Use
  Company Number: JP-CHUGAI-2023045283

PATIENT
  Age: 48 Year
  Sex: Female

DRUGS (10)
  1. ENSPRYNG [Suspect]
     Active Substance: SATRALIZUMAB-MWGE
     Indication: Neuromyelitis optica spectrum disorder
     Route: 058
     Dates: start: 20200921, end: 20200928
  2. ENSPRYNG [Suspect]
     Active Substance: SATRALIZUMAB-MWGE
     Route: 058
     Dates: start: 20210415, end: 20220701
  3. ENSPRYNG [Suspect]
     Active Substance: SATRALIZUMAB-MWGE
     Route: 058
     Dates: start: 20200928, end: 20200928
  4. ENSPRYNG [Suspect]
     Active Substance: SATRALIZUMAB-MWGE
     Route: 058
     Dates: start: 20201005, end: 20220701
  5. RITUXAN [Suspect]
     Active Substance: RITUXIMAB
     Indication: Prophylaxis
     Route: 041
  6. CYCLOPHOSPHAMIDE [Suspect]
     Active Substance: CYCLOPHOSPHAMIDE
     Indication: Product used for unknown indication
     Dosage: UNK
     Route: 065
  7. MITOXANTRONE [Suspect]
     Active Substance: MITOXANTRONE HYDROCHLORIDE
     Indication: Product used for unknown indication
     Dosage: UNK
     Route: 065
  8. PREDONINE [Concomitant]
     Active Substance: PREDNISOLONE
     Dates: start: 20200921, end: 20210321
  9. PREDONINE [Concomitant]
     Active Substance: PREDNISOLONE
     Dosage: 9 MG/DAY
     Dates: start: 20211217, end: 20220213
  10. PREDONINE [Concomitant]
     Active Substance: PREDNISOLONE
     Dates: start: 20220214, end: 20220701

REACTIONS (3)
  - Breast cancer [Recovering/Resolving]
  - Subcutaneous abscess [Recovered/Resolved]
  - Off label use [Unknown]

NARRATIVE: CASE EVENT DATE: 20210701
